FAERS Safety Report 5037346-2 (Version None)
Quarter: 2006Q2

REPORT INFORMATION
  Report Type: 
  Country: None (occurrence: None)
  Receive Date: 20060622
  Receipt Date: 20060608
  Transmission Date: 20061013
  Serious: Yes (Life-Threatening)
  Sender: FDA-Public Use
  Company Number: 2006JP001683

PATIENT
  Age: 63 Year
  Sex: Male

DRUGS (6)
  1. PROGRAF [Suspect]
     Dosage: 0.5 MG, ORAL
     Route: 048
     Dates: start: 20060519, end: 20060529
  2. TAKEPRON (LANSOPRAZOLE) PER ORAL NOS [Suspect]
     Dosage: 30 MG, ORAL
     Route: 048
     Dates: start: 20060523, end: 20060529
  3. GASTER D TABLET [Concomitant]
  4. DORNER (BERAPROST SODIUM) TABLET [Concomitant]
  5. BLOPRESS (CANDESARTAN CILEXETIL) PER ORAL NOS [Concomitant]
  6. RENIVACE (ENALAPRIL MALEATE) PER ORAL NOS [Concomitant]

REACTIONS (2)
  - CONVULSION [None]
  - DEPRESSED LEVEL OF CONSCIOUSNESS [None]
